FAERS Safety Report 7991085 (Version 6)
Quarter: 2013Q1

REPORT INFORMATION
  Report Type: Spontaneous
  Country: US (occurrence: US)
  Receive Date: 20110615
  Receipt Date: 20130212
  Transmission Date: 20140127
  Serious: Yes (Hospitalization)
  Sender: FDA-Public Use
  Company Number: US-BIOGENIDEC-2011BI020592

PATIENT
  Age: 52 Year
  Sex: Male

DRUGS (1)
  1. TYSABRI [Suspect]
     Indication: MULTIPLE SCLEROSIS
     Route: 042
     Dates: start: 20110311

REACTIONS (9)
  - Brain neoplasm benign [Recovered/Resolved]
  - Convulsion [Recovered/Resolved]
  - Ligament sprain [Recovered/Resolved]
  - Muscle spasms [Recovered/Resolved]
  - Cerebral cyst [Unknown]
  - Blister [Not Recovered/Not Resolved]
  - Musculoskeletal stiffness [Not Recovered/Not Resolved]
  - Pain in extremity [Recovered/Resolved]
  - Abasia [Unknown]
